FAERS Safety Report 6101633-7 (Version None)
Quarter: 2009Q1

REPORT INFORMATION
  Report Type: 
  Country: None (occurrence: None)
  Receive Date: 20090227
  Receipt Date: 20090217
  Transmission Date: 20090719
  Serious: Yes (Hospitalization)
  Sender: FDA-Public Use
  Company Number: US-2009-00056

PATIENT
  Age: 68 Year
  Sex: Female

DRUGS (2)
  1. SIMVASTATIN [Suspect]
  2. ENALAPRIL [Concomitant]

REACTIONS (10)
  - ABASIA [None]
  - ALANINE AMINOTRANSFERASE INCREASED [None]
  - ASPARTATE AMINOTRANSFERASE INCREASED [None]
  - BLOOD CREATINE PHOSPHOKINASE INCREASED [None]
  - CHROMATURIA [None]
  - ELECTROMYOGRAM ABNORMAL [None]
  - HYPOREFLEXIA [None]
  - MUSCLE CONTRACTIONS INVOLUNTARY [None]
  - MUSCULAR WEAKNESS [None]
  - MYOGLOBIN URINE PRESENT [None]
